FAERS Safety Report 19097306 (Version 1)
Quarter: 2021Q2

REPORT INFORMATION
  Report Type: Spontaneous
  Country: US (occurrence: US)
  Receive Date: 20210406
  Receipt Date: 20210406
  Transmission Date: 20210717
  Serious: Yes (Hospitalization)
  Sender: FDA-Public Use
  Company Number: None

PATIENT
  Age: 48 Year
  Sex: Male
  Weight: 137.6 kg

DRUGS (3)
  1. BAMLANIVIMAB AND ETESEVIMAB [Suspect]
     Active Substance: BAMLANIVIMAB\ETESEVIMAB
     Indication: COVID-19
     Dosage: ?          OTHER FREQUENCY:ONCE;?
     Route: 041
     Dates: start: 20210405, end: 20210405
  2. ACETAMINOPHEN. [Concomitant]
     Active Substance: ACETAMINOPHEN
     Dates: start: 20210405
  3. BAMLANIVIMAB AND ETESEVIMAB [Suspect]
     Active Substance: BAMLANIVIMAB\ETESEVIMAB
     Indication: COVID-19
     Route: 041
     Dates: start: 20210405, end: 20210405

REACTIONS (6)
  - Tachypnoea [None]
  - COVID-19 [None]
  - Pyrexia [None]
  - Tachycardia [None]
  - Infusion related reaction [None]
  - Oxygen saturation decreased [None]

NARRATIVE: CASE EVENT DATE: 20210405
